FAERS Safety Report 8431370-5 (Version None)
Quarter: 2012Q2

REPORT INFORMATION
  Report Type: 
  Country: None (occurrence: None)
  Receive Date: 20120613
  Receipt Date: 20120607
  Transmission Date: 20120825
  Serious: No
  Sender: FDA-Public Use
  Company Number: US-PFIZER INC-2012137986

PATIENT
  Sex: Male
  Weight: 74.83 kg

DRUGS (5)
  1. ADVIL [Suspect]
     Indication: MIGRAINE
     Dosage: 200 MG, TWO TABLETS, DAILY
     Route: 048
     Dates: start: 20120501
  2. ATENOLOL [Concomitant]
     Indication: HYPERTENSION
     Dosage: 50 MG, DAILY
  3. ADVIL MIGRAINE LIQUI-GELS [Concomitant]
     Indication: MIGRAINE
     Dosage: 200 MG, TWO CAPSULES, DAILY
  4. SIMVASTATIN [Concomitant]
     Indication: BLOOD CHOLESTEROL INCREASED
     Dosage: 40 MG, DAILY
  5. MAVIK [Concomitant]
     Indication: HYPERTENSION
     Dosage: 1 MG, 2X/DAY

REACTIONS (1)
  - DRUG INEFFECTIVE [None]
